FAERS Safety Report 4424296-5 (Version None)
Quarter: 2004Q3

REPORT INFORMATION
  Report Type: 
  Country: None (occurrence: None)
  Receive Date: 20040806
  Receipt Date: 20040806
  Transmission Date: 20050211
  Serious: Yes (Hospitalization)
  Sender: FDA-Public Use
  Company Number: None

PATIENT
  Age: 66 Year
  Sex: Female

DRUGS (1)
  1. QUINACRINE  100MG [Suspect]
     Indication: DERMATOMYOSITIS
     Dosage: 100MG  BID  ORAL
     Route: 048
     Dates: start: 20040623, end: 20040801

REACTIONS (2)
  - DRUG TOXICITY [None]
  - PSYCHOTIC DISORDER [None]
